FAERS Safety Report 8681073 (Version 4)
Quarter: 2012Q4

REPORT INFORMATION
  Report Type: 
  Country: US (occurrence: US)
  Receive Date: 20120724
  Receipt Date: 20121116
  Transmission Date: 20130627
  Serious: Yes (Hospitalization, Disabling, Other)
  Sender: FDA-Public Use
  Company Number: US-009507513-1207USA003699

PATIENT

DRUGS (14)
  1. FOSAMAX [Suspect]
     Indication: OSTEOPENIA
     Dosage: 70 mg, qw
     Route: 048
     Dates: start: 200102, end: 201007
  2. FOSAMAX [Suspect]
     Indication: OSTEOPOROSIS
  3. ALENDRONATE SODIUM [Suspect]
     Indication: OSTEOPOROSIS
     Dosage: 70 mg, UNK
     Dates: start: 200102, end: 201007
  4. ALENDRONATE SODIUM [Suspect]
     Indication: OSTEOPENIA
  5. ADVAIR [Concomitant]
     Dosage: 100/50
     Dates: start: 2002
  6. VENTOLIN (ALBUTEROL SULFATE) [Concomitant]
     Dosage: UNK, prn
     Dates: start: 1962
  7. ZOCOR [Concomitant]
     Dosage: 40 mg, qd
  8. SINGULAIR [Concomitant]
     Dosage: UNK, prn
  9. DIOVAN [Concomitant]
     Indication: HYPERTENSION
     Dosage: 12.5 mg, UNK
  10. VANCERIL [Concomitant]
     Indication: ASTHMA
     Dosage: UNK, prn
  11. SEREVENT [Concomitant]
     Indication: ASTHMA
     Dosage: UNK, prn
  12. FOSAMAX [Suspect]
     Indication: OSTEOPENIA
     Dosage: 70 mg, UNK
     Route: 048
     Dates: start: 200908, end: 201007
  13. PREMARIN [Concomitant]
     Indication: HORMONE REPLACEMENT THERAPY
     Dosage: 0.625 mg, qd
     Route: 048
  14. PROVERA [Concomitant]
     Indication: HORMONE REPLACEMENT THERAPY
     Dosage: 10 mg, UNK
     Route: 048

REACTIONS (79)
  - Femur fracture [Not Recovered/Not Resolved]
  - Osteoporosis [Not Recovered/Not Resolved]
  - Stress fracture [Not Recovered/Not Resolved]
  - Femur fracture [Not Recovered/Not Resolved]
  - Low turnover osteopathy [Not Recovered/Not Resolved]
  - Dehydration [Unknown]
  - Open reduction of fracture [Unknown]
  - Anaemia postoperative [Unknown]
  - Femur fracture [Unknown]
  - Diabetes mellitus [Unknown]
  - Peptic ulcer [Unknown]
  - Renal failure chronic [Not Recovered/Not Resolved]
  - Adverse event [Unknown]
  - Polymenorrhoea [Unknown]
  - Vulvovaginal pruritus [Unknown]
  - Bronchitis [Unknown]
  - Carotid artery stenosis [Unknown]
  - Breast disorder [Unknown]
  - Breast calcifications [Unknown]
  - Intraductal papillary mucinous neoplasm [Unknown]
  - Hepatic cyst [Unknown]
  - Pulmonary mass [Unknown]
  - Osteoarthritis [Unknown]
  - Aortic arteriosclerosis [Unknown]
  - Ovarian cyst [Unknown]
  - Ovarian neoplasm [Unknown]
  - Atrophy [Unknown]
  - White matter lesion [Not Recovered/Not Resolved]
  - Cerebellar infarction [Unknown]
  - Cardiomegaly [Unknown]
  - Arteriosclerosis coronary artery [Unknown]
  - Peripheral vascular disorder [Unknown]
  - Pneumonia [Unknown]
  - Granuloma [Unknown]
  - Hiatus hernia [Unknown]
  - Gallbladder polyp [Unknown]
  - Large intestine polyp [Unknown]
  - Haemorrhoids [Unknown]
  - Vascular headache [Unknown]
  - Cerebrovascular disorder [Unknown]
  - Nephrosclerosis [Unknown]
  - Urinary tract infection [Unknown]
  - Menorrhagia [Unknown]
  - Lymphadenopathy [Unknown]
  - Cataract [Unknown]
  - Chronic sinusitis [Unknown]
  - Dermatosis [Not Recovered/Not Resolved]
  - Hyperuricaemia [Unknown]
  - Globulins increased [Unknown]
  - Hypokalaemia [Unknown]
  - Lordosis [Unknown]
  - Kyphosis [Unknown]
  - Spondylolisthesis [Unknown]
  - Spinal column stenosis [Unknown]
  - Haemangioma [Unknown]
  - Cervicogenic headache [Unknown]
  - Haematoma [Recovering/Resolving]
  - Haemarthrosis [Unknown]
  - Osteoarthritis [Unknown]
  - Brain stem ischaemia [Unknown]
  - Chronic sinusitis [Not Recovered/Not Resolved]
  - Angiopathy [Unknown]
  - Metaplasia [Unknown]
  - Maculopathy [Unknown]
  - Retinal migraine [Unknown]
  - Amaurosis fugax [Unknown]
  - Blood albumin decreased [Unknown]
  - Cardiac murmur [Unknown]
  - Contusion [Unknown]
  - Fall [Unknown]
  - Gait disturbance [Unknown]
  - Flatulence [Unknown]
  - Constipation [Unknown]
  - Gastrooesophageal reflux disease [Unknown]
  - Dizziness [Unknown]
  - Gastritis [Not Recovered/Not Resolved]
  - Headache [Unknown]
  - Uterine dilation and curettage [Unknown]
  - Endometrial hypertrophy [Unknown]
